FAERS Safety Report 16159109 (Version 2)
Quarter: 2020Q1

REPORT INFORMATION
  Report Type: Spontaneous
  Country: US (occurrence: US)
  Receive Date: 20190404
  Receipt Date: 20200130
  Transmission Date: 20200409
  Serious: Yes (Death, Hospitalization, Other)
  Sender: FDA-Public Use
  Company Number: US-ELI_LILLY_AND_COMPANY-US201904001714

PATIENT
  Age: 65 Year
  Sex: Male

DRUGS (1)
  1. TRULICITY [Suspect]
     Active Substance: DULAGLUTIDE
     Indication: PRODUCT USED FOR UNKNOWN INDICATION
     Dosage: 1.5 MG, SINGLE
     Route: 065
     Dates: start: 20180118, end: 20180118

REACTIONS (11)
  - Fall [Unknown]
  - Blood glucose increased [Fatal]
  - Asthenia [Unknown]
  - Syncope [Unknown]
  - Blood pressure decreased [Unknown]
  - Nausea [Unknown]
  - Metabolic acidosis [Unknown]
  - Neck pain [Unknown]
  - Dyspnoea [Unknown]
  - Body temperature decreased [Unknown]
  - Frequent bowel movements [Unknown]

NARRATIVE: CASE EVENT DATE: 20180119
